FAERS Safety Report 21439694 (Version 1)
Quarter: 2022Q4

REPORT INFORMATION
  Report Type: Spontaneous
  Country: None (occurrence: US)
  Receive Date: 20221011
  Receipt Date: 20221011
  Transmission Date: 20230112
  Serious: No
  Sender: FDA-Public Use
  Company Number: US-Lavipharm SA-2133669

PATIENT
  Sex: Female

DRUGS (1)
  1. CATAPRES-TTS [Suspect]
     Active Substance: CLONIDINE
     Indication: Blood pressure measurement
     Route: 062

REACTIONS (3)
  - Product adhesion issue [Unknown]
  - Accidental underdose [Unknown]
  - Headache [Recovered/Resolved]
